FAERS Safety Report 9134958 (Version 2)
Quarter: 2013Q4

REPORT INFORMATION
  Report Type: Spontaneous
  Country: DK (occurrence: DK)
  Receive Date: 20130304
  Receipt Date: 20131125
  Transmission Date: 20140711
  Serious: Yes (Other)
  Sender: FDA-Public Use
  Company Number: DK-PFIZER INC-2013071309

PATIENT
  Age: 33 Year
  Sex: Female
  Weight: 90 kg

DRUGS (2)
  1. CHAMPIX [Suspect]
     Indication: SMOKING CESSATION THERAPY
     Dosage: AS PRESCRIBED IN THE PACKET INSERT
     Route: 048
     Dates: start: 20120310, end: 20120323
  2. TREO CITRUS [Concomitant]
     Indication: HEADACHE
     Dosage: UNK

REACTIONS (4)
  - Mania [Recovered/Resolved]
  - Elevated mood [Recovered/Resolved]
  - Insomnia [Recovered/Resolved]
  - Logorrhoea [Recovered/Resolved]
